FAERS Safety Report 8507684-7 (Version None)
Quarter: 2012Q3

REPORT INFORMATION
  Report Type: 
  Country: None (occurrence: None)
  Receive Date: 20120713
  Receipt Date: 20120702
  Transmission Date: 20120928
  Serious: No
  Sender: FDA-Public Use
  Company Number: US-009507513-1207USA001324

PATIENT

DRUGS (6)
  1. XANAX [Concomitant]
     Dosage: 0.25 MG, UNK
  2. AMBIEN [Concomitant]
     Dosage: 10 MG, UNK
  3. RIBAVIRIN [Concomitant]
     Dosage: 200 MG, UNK
  4. PEG-INTRON [Suspect]
     Dosage: 150 MICROGRAM, QW
     Route: 058
  5. VALIUM [Concomitant]
     Dosage: 2 MG, UNK
  6. IBUPROFEN (ADVIL) [Concomitant]
     Dosage: 200 MG, UNK

REACTIONS (5)
  - POLYURIA [None]
  - NAUSEA [None]
  - SLEEP DISORDER [None]
  - CHEST PAIN [None]
  - MOOD ALTERED [None]
